FAERS Safety Report 5897369-8 (Version None)
Quarter: 2008Q3

REPORT INFORMATION
  Report Type: 
  Country: None (occurrence: None)
  Receive Date: 20080902
  Receipt Date: 20070701
  Transmission Date: 20090109
  Serious: Yes (Other)
  Sender: FDA-Public Use
  Company Number: US023750

PATIENT
  Age: 19 Year
  Sex: Female

DRUGS (5)
  1. GABITRIL [Suspect]
     Indication: MYOCLONIC EPILEPSY
     Dosage: 36 MG QD ORAL
     Route: 048
  2. DILANTIN [Concomitant]
  3. ATIVAN [Concomitant]
  4. PRENATAL VITAMINS /01549301/ [Concomitant]
  5. FOLIC ACID [Concomitant]

REACTIONS (2)
  - CONVULSION [None]
  - DRUG EXPOSURE DURING PREGNANCY [None]
